FAERS Safety Report 8585304-3 (Version None)
Quarter: 2012Q3

REPORT INFORMATION
  Report Type: 
  Country: None (occurrence: None)
  Receive Date: 20120810
  Receipt Date: 20120802
  Transmission Date: 20120928
  Serious: Yes (Other)
  Sender: FDA-Public Use
  Company Number: US-CELGENEUS-163-21880-12053613

PATIENT
  Sex: Female
  Weight: 72.186 kg

DRUGS (18)
  1. NITROGLYCERIN [Concomitant]
     Route: 060
  2. LEVEMIR [Concomitant]
     Dosage: 1 MILLILITER
     Route: 058
  3. RENVELA [Concomitant]
     Dosage: 800 MILLIGRAM
     Route: 048
  4. NOVOLOG [Concomitant]
     Dosage: 1 MILLILITER
     Route: 058
  5. ACETAMINOPHEN [Concomitant]
     Dosage: 325 MILLIGRAM
     Route: 048
  6. DEXAMETHASONE [Concomitant]
     Dosage: 4 MILLIGRAM
     Route: 048
  7. NITROTAB [Concomitant]
     Route: 060
  8. M.V.I. [Concomitant]
     Route: 065
  9. METOPROLOL TARTRATE [Concomitant]
     Dosage: 100 MILLIGRAM
     Route: 048
  10. VITAMIN D [Concomitant]
     Dosage: 1000 IU (INTERNATIONAL UNIT)
     Route: 048
  11. FUROSEMIDE [Concomitant]
     Dosage: 80 MILLIGRAM
     Route: 048
  12. TOPROL-XL [Concomitant]
     Route: 065
  13. ASPIRIN [Suspect]
     Route: 065
  14. PRAVASTATIN [Concomitant]
     Dosage: 40 MILLIGRAM
     Route: 048
  15. REVLIMID [Suspect]
     Indication: MULTIPLE MYELOMA
     Dosage: 5 MILLIGRAM
     Route: 048
     Dates: start: 20120426, end: 20120516
  16. ALLOPURINOL [Concomitant]
     Dosage: 300 MILLIGRAM
     Route: 048
  17. OMEPRAZOLE [Concomitant]
     Dosage: 20 MILLIGRAM
     Route: 065
  18. DIOVAN [Concomitant]
     Dosage: 160 MILLIGRAM
     Route: 065

REACTIONS (2)
  - HAEMATOCHEZIA [None]
  - CARDIAC DISORDER [None]
